FAERS Safety Report 6326578-9 (Version None)
Quarter: 2009Q3

REPORT INFORMATION
  Report Type: 
  Country: None (occurrence: None)
  Receive Date: 20090825
  Receipt Date: 20090817
  Transmission Date: 20100115
  Serious: Yes (Hospitalization)
  Sender: FDA-Public Use
  Company Number: FI-ASTRAZENECA-2009SE01863

PATIENT
  Age: 18672 Day
  Sex: Female

DRUGS (12)
  1. SYMBICORT [Suspect]
     Indication: ASTHMA
     Route: 055
     Dates: start: 20090101
  2. SYMBICORT [Suspect]
     Route: 055
  3. SYMBICORT [Suspect]
     Route: 055
  4. SYMBICORT [Suspect]
     Route: 055
  5. SYMBICORT [Suspect]
     Route: 055
  6. SYMBICORT [Suspect]
     Route: 055
  7. SYMBICORT [Suspect]
     Route: 055
  8. SYMBICORT [Suspect]
     Route: 055
  9. SYMBICORT [Suspect]
     Route: 055
  10. AERIUS [Concomitant]
     Indication: HYPERSENSITIVITY
     Route: 048
  11. ZANIDIP [Concomitant]
     Indication: HYPERTENSION
     Route: 048
     Dates: start: 20090101
  12. SINGULAIR [Concomitant]
     Indication: ASTHMA
     Route: 048
     Dates: start: 20090101

REACTIONS (6)
  - APHONIA [None]
  - ASTHMA [None]
  - DRUG INEFFECTIVE [None]
  - INCREASED UPPER AIRWAY SECRETION [None]
  - OBSTRUCTIVE AIRWAYS DISORDER [None]
  - PEAK EXPIRATORY FLOW RATE DECREASED [None]
